FAERS Safety Report 20417013 (Version 1)
Quarter: 2022Q1

REPORT INFORMATION
  Report Type: Other
  Country: DE (occurrence: None)
  Receive Date: 20220202
  Receipt Date: 20220202
  Transmission Date: 20220423
  Serious: No
  Sender: FDA-Public Use
  Company Number: DE-ROCHE-2956589

PATIENT
  Age: 35 Year
  Sex: Female

DRUGS (1)
  1. OCREVUS [Suspect]
     Active Substance: OCRELIZUMAB
     Indication: Relapsing-remitting multiple sclerosis
     Route: 042
     Dates: start: 202104

REACTIONS (3)
  - Influenza [Unknown]
  - Skin disorder [Unknown]
  - Hidradenitis [Unknown]
